FAERS Safety Report 7607662-6 (Version None)
Quarter: 2011Q3

REPORT INFORMATION
  Report Type: 
  Country: None (occurrence: None)
  Receive Date: 20110713
  Receipt Date: 20110504
  Transmission Date: 20111222
  Serious: Yes (Other)
  Sender: FDA-Public Use
  Company Number: PHHY2011US37397

PATIENT
  Age: 58 Year

DRUGS (2)
  1. AFINITOR [Suspect]
  2. RADIATION THERAPY [Concomitant]
     Dosage: UNK
     Dates: start: 20110216, end: 20110401

REACTIONS (2)
  - PYREXIA [None]
  - METASTASES TO LUNG [None]
